FAERS Safety Report 6996651-0 (Version None)
Quarter: 2010Q3

REPORT INFORMATION
  Report Type: 
  Country: None (occurrence: None)
  Receive Date: 20100918
  Receipt Date: 20090427
  Transmission Date: 20110219
  Serious: No
  Sender: FDA-Public Use
  Company Number: US-WYE-H09129409

PATIENT
  Sex: Male
  Weight: 97.61 kg

DRUGS (7)
  1. EFFEXOR XR [Suspect]
     Indication: DEPRESSION
     Route: 048
     Dates: end: 20081101
  2. EFFEXOR XR [Suspect]
     Route: 048
     Dates: start: 20081101
  3. HYDROCHLOROTHIAZIDE [Concomitant]
  4. LOTREL [Concomitant]
  5. ATENOLOL [Concomitant]
  6. STRATTERA [Concomitant]
  7. XANAX [Concomitant]

REACTIONS (6)
  - CONFUSIONAL STATE [None]
  - DRUG WITHDRAWAL SYNDROME [None]
  - FATIGUE [None]
  - INFLUENZA LIKE ILLNESS [None]
  - PAIN [None]
  - PARAESTHESIA [None]
